FAERS Safety Report 21773954 (Version 4)
Quarter: 2023Q2

REPORT INFORMATION
  Report Type: Spontaneous
  Country: RU (occurrence: RU)
  Receive Date: 20221223
  Receipt Date: 20230526
  Transmission Date: 20230721
  Serious: Yes (Hospitalization, Other)
  Sender: FDA-Public Use
  Company Number: RU-009507513-2212RUS008496

PATIENT
  Age: 60 Year
  Sex: Female
  Weight: 54 kg

DRUGS (8)
  1. PEMBROLIZUMAB [Suspect]
     Active Substance: PEMBROLIZUMAB
     Indication: Metastatic uterine cancer
     Dosage: 200 MILLIGRAM, Q3W
     Route: 042
  2. LENVATINIB MESYLATE [Suspect]
     Active Substance: LENVATINIB MESYLATE
     Indication: Metastatic uterine cancer
     Dosage: 20 MILLIGRAM, QD
     Route: 048
     Dates: start: 202004, end: 202007
  3. LENVATINIB MESYLATE [Suspect]
     Active Substance: LENVATINIB MESYLATE
     Dosage: 10 MILLIGRAM, QD (AFTER 30 DAYS BREAK)
     Route: 048
     Dates: start: 202007, end: 202207
  4. LENVATINIB MESYLATE [Suspect]
     Active Substance: LENVATINIB MESYLATE
     Dosage: 0 MILLIGRAM, QD (SUSPENSE)
     Route: 048
     Dates: start: 202207, end: 202207
  5. LENVATINIB MESYLATE [Suspect]
     Active Substance: LENVATINIB MESYLATE
     Dosage: 10 MILLIGRAM, QD
     Route: 048
     Dates: start: 202207, end: 20230306
  6. LENVATINIB MESYLATE [Suspect]
     Active Substance: LENVATINIB MESYLATE
     Dosage: 14 MILLIGRAM, QD
     Route: 048
     Dates: start: 20230307, end: 20230406
  7. LENVATINIB MESYLATE [Suspect]
     Active Substance: LENVATINIB MESYLATE
     Dosage: 10 MILLIGRAM, QD
     Route: 048
     Dates: start: 20230407
  8. PACLITAXEL [Suspect]
     Active Substance: PACLITAXEL
     Indication: Metastatic uterine cancer
     Dosage: UNK

REACTIONS (17)
  - Dehydration [Unknown]
  - Neuropathy peripheral [Not Recovered/Not Resolved]
  - Vomiting [Unknown]
  - Vomiting [Recovered/Resolved with Sequelae]
  - Fatigue [Unknown]
  - Diarrhoea [Unknown]
  - Diarrhoea [Recovered/Resolved with Sequelae]
  - Musculoskeletal disorder [Unknown]
  - Gastrointestinal pain [Not Recovered/Not Resolved]
  - Pain in extremity [Not Recovered/Not Resolved]
  - Asthenia [Not Recovered/Not Resolved]
  - Arthralgia [Unknown]
  - Weight decreased [Unknown]
  - Diarrhoea [Unknown]
  - Vomiting [Unknown]
  - Weight decreased [Unknown]
  - Medical diet [Unknown]

NARRATIVE: CASE EVENT DATE: 20200701
